FAERS Safety Report 4424136-4 (Version None)
Quarter: 2004Q3

REPORT INFORMATION
  Report Type: 
  Country: None (occurrence: None)
  Receive Date: 20040810
  Receipt Date: 20040810
  Transmission Date: 20050211
  Serious: Yes (Other)
  Sender: FDA-Public Use
  Company Number: None

PATIENT
  Sex: Female

DRUGS (2)
  1. BUPROPION HCL [Suspect]
     Indication: ANXIETY
     Dosage: 150 MG PO BID
     Route: 048
     Dates: start: 20040501
  2. BUPROPION HCL [Suspect]
     Indication: DEPRESSION
     Dosage: 150 MG PO BID
     Route: 048
     Dates: start: 20040501

REACTIONS (2)
  - DRUG INEFFECTIVE [None]
  - PHARMACEUTICAL PRODUCT COMPLAINT [None]
